FAERS Safety Report 10608138 (Version 4)
Quarter: 2015Q1

REPORT INFORMATION
  Report Type: Report from Study
  Country: NL (occurrence: NL)
  Receive Date: 20141125
  Receipt Date: 20150224
  Transmission Date: 20150720
  Serious: Yes (Hospitalization, Other)
  Sender: FDA-Public Use
  Company Number: US-ASTRAZENECA-2014SE89795

PATIENT
  Age: 74 Day
  Sex: Male
  Weight: 4.4 kg

DRUGS (3)
  1. FERROFUMARAAT [Concomitant]
     Indication: ANAEMIA
     Dosage: DAILY
     Dates: start: 20141014, end: 20141218
  2. THYRAX [Concomitant]
     Indication: PRODUCT USED FOR UNKNOWN INDICATION
     Dosage: DAILY
     Route: 048
  3. SYNAGIS [Suspect]
     Active Substance: PALIVIZUMAB
     Indication: PREMATURE BABY
     Route: 030
     Dates: start: 20141016

REACTIONS (5)
  - Nasopharyngitis [Recovered/Resolved]
  - Apnoea [Recovered/Resolved]
  - Oxygen saturation decreased [Recovered/Resolved]
  - Bradycardia [Recovered/Resolved]
  - Bronchopulmonary dysplasia [Unknown]

NARRATIVE: CASE EVENT DATE: 20141023
